FAERS Safety Report 23392274 (Version 1)
Quarter: 2024Q1

REPORT INFORMATION
  Report Type: Spontaneous
  Country: US (occurrence: US)
  Receive Date: 20240111
  Receipt Date: 20240111
  Transmission Date: 20240410
  Serious: No
  Sender: FDA-Public Use
  Company Number: US-REGENERON PHARMACEUTICALS, INC.-2023-065488

PATIENT
  Sex: Female

DRUGS (4)
  1. EYLEA [Suspect]
     Active Substance: AFLIBERCEPT
     Indication: Retinal vein occlusion
     Dosage: UNK, Q4W (FORMULATION: NOT REPORTED)
     Dates: start: 202302, end: 202302
  2. EYLEA [Suspect]
     Active Substance: AFLIBERCEPT
     Indication: Macular oedema
     Dosage: UNK, Q4W (FORMULATION: NOT REPORTED)
     Dates: start: 202303, end: 202303
  3. EYLEA [Suspect]
     Active Substance: AFLIBERCEPT
     Indication: Dry age-related macular degeneration
     Dosage: UNK, Q4W (FORMULATION: NOT REPORTED)
     Dates: start: 202304, end: 202304
  4. EYLEA [Suspect]
     Active Substance: AFLIBERCEPT
     Indication: Venous occlusion

REACTIONS (4)
  - Off label use [Not Recovered/Not Resolved]
  - Rash pruritic [Not Recovered/Not Resolved]
  - Eye pain [Not Recovered/Not Resolved]
  - Injection site irritation [Unknown]

NARRATIVE: CASE EVENT DATE: 20230101
